FAERS Safety Report 9166697 (Version 1)
Quarter: 2013Q1

REPORT INFORMATION
  Report Type: Report from Study
  Country: DE (occurrence: DE)
  Receive Date: 20130315
  Receipt Date: 20130315
  Transmission Date: 20140127
  Serious: Yes (Death)
  Sender: FDA-Public Use
  Company Number: DE-ROCHE-1199885

PATIENT
  Sex: Male

DRUGS (1)
  1. TARCEVA [Suspect]
     Indication: NON-SMALL CELL LUNG CANCER
     Route: 048
     Dates: start: 200612, end: 200802

REACTIONS (4)
  - Diarrhoea [Unknown]
  - Gamma-glutamyltransferase increased [Unknown]
  - Neoplasm malignant [Unknown]
  - Death [Fatal]
